FAERS Safety Report 25120445 (Version 3)
Quarter: 2025Q2

REPORT INFORMATION
  Report Type: Report from Study
  Country: US (occurrence: US)
  Receive Date: 20250325
  Receipt Date: 20250403
  Transmission Date: 20250717
  Serious: Yes (Hospitalization, Other)
  Sender: ALNYLAM PHARMACEUTICALS
  Company Number: US-ALNYLAM PHARMACEUTICALS, INC.-ALN-2025-001912

PATIENT

DRUGS (1)
  1. GIVLAARI [Suspect]
     Active Substance: GIVOSIRAN SODIUM
     Indication: Porphyria acute
     Route: 065
     Dates: start: 20201029, end: 20201029

REACTIONS (11)
  - Hospitalisation [Unknown]
  - Loss of consciousness [Unknown]
  - Pneumonia [Unknown]
  - Fall [Unknown]
  - Tremor [Unknown]
  - Hypersomnia [Unknown]
  - Peripheral swelling [Unknown]
  - Therapy interrupted [Unknown]
  - Liver disorder [Unknown]
  - Gait disturbance [Unknown]
  - Ear infection [Unknown]

NARRATIVE: CASE EVENT DATE: 20250101
